FAERS Safety Report 18313389 (Version 1)
Quarter: 2020Q3

REPORT INFORMATION
  Report Type: Spontaneous
  Country: US (occurrence: US)
  Receive Date: 20200925
  Receipt Date: 20200925
  Transmission Date: 20201103
  Serious: No
  Sender: FDA-Public Use
  Company Number: US-GRANULES INDIA LIMITED-2091163

PATIENT
  Age: 70 Year
  Sex: Female
  Weight: 90.91 kg

DRUGS (1)
  1. METFORMIN [Suspect]
     Active Substance: METFORMIN HYDROCHLORIDE
     Indication: DIABETES MELLITUS
     Route: 065
     Dates: start: 202005, end: 202005

REACTIONS (2)
  - Drug ineffective [Unknown]
  - Burning sensation [Unknown]

NARRATIVE: CASE EVENT DATE: 202005
